FAERS Safety Report 7832499-2 (Version None)
Quarter: 2011Q4

REPORT INFORMATION
  Report Type: 
  Country: None (occurrence: None)
  Receive Date: 20111024
  Receipt Date: 20111010
  Transmission Date: 20120403
  Serious: Yes (Hospitalization)
  Sender: FDA-Public Use
  Company Number: GB-RANBAXY-2011R1-48970

PATIENT
  Age: 35 Year
  Sex: Male
  Weight: 108 kg

DRUGS (5)
  1. MOVIPREP [Concomitant]
     Indication: CONSTIPATION
     Dosage: 1 DF, PRN
     Route: 048
  2. PAROXETINE HCL [Concomitant]
     Indication: ANXIETY
     Dosage: UNK
     Route: 048
     Dates: start: 20110628
  3. SERTRALINE HYDROCHLORIDE [Suspect]
     Indication: ANXIETY
     Dosage: UNK
     Route: 048
     Dates: start: 20110501, end: 20110627
  4. HALOPERIDOL [Concomitant]
     Indication: AGITATION
     Dosage: 1.5 MG, QID
     Route: 048
  5. RISPERIDONE [Concomitant]
     Indication: ANXIETY
     Dosage: 3 MG, BID
     Route: 048

REACTIONS (1)
  - GRAND MAL CONVULSION [None]
